FAERS Safety Report 7767281 (Version 3)
Quarter: 2020Q3

REPORT INFORMATION
  Report Type: Report from Study
  Country: HN (occurrence: HN)
  Receive Date: 20110120
  Receipt Date: 20110125
  Transmission Date: 20201105
  Serious: Yes (Death)
  Sender: FDA-Public Use
  Company Number: HN-ROCHE-753872

PATIENT
  Age: 79 Year
  Sex: Female

DRUGS (3)
  1. IBANDRONIC ACID. [Suspect]
     Active Substance: IBANDRONIC ACID
     Indication: OSTEOPOROSIS
     Route: 048
     Dates: start: 20080515, end: 20101215
  2. HUMULIN R [Concomitant]
     Active Substance: INSULIN HUMAN
     Dosage: REPORTED AS HUMULIN 70/30
     Route: 058
  3. EPOGEN [Concomitant]
     Active Substance: ERYTHROPOIETIN
     Route: 058

REACTIONS (1)
  - Chronic kidney disease [Fatal]

NARRATIVE: CASE EVENT DATE: 20101226
